FAERS Safety Report 8311395-0 (Version None)
Quarter: 2012Q2

REPORT INFORMATION
  Report Type: 
  Country: None (occurrence: None)
  Receive Date: 20120425
  Receipt Date: 20111108
  Transmission Date: 20120825
  Serious: No
  Sender: FDA-Public Use
  Company Number: US-MYLANLABS-2011S1012607

PATIENT
  Age: 68 Year
  Sex: Female

DRUGS (6)
  1. TIAZAC [Concomitant]
  2. DIOVAN [Concomitant]
  3. TRIAMTERENE AND HYDROCHLOROTHIAZIDE [Concomitant]
     Dosage: 37.5MG/25MG
  4. SINGULAIR [Suspect]
     Indication: ASTHMA
  5. DUONEB [Suspect]
     Indication: ASTHMA
     Route: 055
  6. PULMICORT [Suspect]
     Indication: ASTHMA
     Route: 055

REACTIONS (1)
  - CANDIDIASIS [None]
